FAERS Safety Report 15449300 (Version 2)
Quarter: 2018Q4

REPORT INFORMATION
  Report Type: Report from Study
  Country: None (occurrence: GB)
  Receive Date: 20181001
  Receipt Date: 20181022
  Transmission Date: 20190204
  Serious: Yes (Death, Hospitalization)
  Sender: FDA-Public Use
  Company Number: GB-ABBVIE-18K-167-2503975-00

PATIENT
  Age: 72 Year
  Sex: Male

DRUGS (1)
  1. HUMIRA [Suspect]
     Active Substance: ADALIMUMAB
     Indication: RHEUMATOID ARTHRITIS
     Route: 058
     Dates: start: 20130415, end: 20160801

REACTIONS (4)
  - Lower respiratory tract infection fungal [Fatal]
  - Cardiac failure [Fatal]
  - Acute kidney injury [Fatal]
  - Neutropenia [Fatal]

NARRATIVE: CASE EVENT DATE: 20170905
